FAERS Safety Report 8551635-6 (Version None)
Quarter: 2012Q3

REPORT INFORMATION
  Report Type: 
  Country: None (occurrence: None)
  Receive Date: 20120730
  Receipt Date: 20120723
  Transmission Date: 20120928
  Serious: Yes (Other)
  Sender: FDA-Public Use
  Company Number: US-US-EMD SERONO, INC.-7132744

PATIENT
  Sex: Male

DRUGS (3)
  1. IBUPROFEN [Concomitant]
     Indication: PREMEDICATION
  2. REBIF [Suspect]
     Indication: MULTIPLE SCLEROSIS
     Route: 058
  3. REBIF [Suspect]
     Route: 058
     Dates: start: 20120409

REACTIONS (2)
  - INJECTION SITE PAIN [None]
  - NEPHROLITHIASIS [None]
